FAERS Safety Report 4345872-4 (Version None)
Quarter: 2004Q2

REPORT INFORMATION
  Report Type: 
  Country: None (occurrence: None)
  Receive Date: 20040421
  Receipt Date: 20040408
  Transmission Date: 20050107
  Serious: Yes (Death, Hospitalization)
  Sender: FDA-Public Use
  Company Number: 2004024292

PATIENT
  Age: 66 Year
  Sex: Male

DRUGS (2)
  1. QUINAPRIL HCL [Suspect]
     Indication: ILL-DEFINED DISORDER
  2. FLUINIDIONE (FLUINDIONE) [Suspect]
     Indication: ILL-DEFINED DISORDER

REACTIONS (7)
  - C-REACTIVE PROTEIN INCREASED [None]
  - COMA [None]
  - DECEREBRATION [None]
  - GRAND MAL CONVULSION [None]
  - HAEMORRHAGIC STROKE [None]
  - ISCHAEMIC STROKE [None]
  - MIOSIS [None]
